FAERS Safety Report 8387539-1 (Version None)
Quarter: 2012Q2

REPORT INFORMATION
  Report Type: 
  Country: None (occurrence: None)
  Receive Date: 20120525
  Receipt Date: 20120522
  Transmission Date: 20120825
  Serious: Yes (Other)
  Sender: FDA-Public Use
  Company Number: PHHY2012CA020620

PATIENT
  Sex: Female

DRUGS (3)
  1. SANDOSTATIN LAR [Suspect]
     Indication: NEUROENDOCRINE TUMOUR
     Dosage: 30 MG, QMO
     Route: 030
     Dates: start: 20090315
  2. SANDOSTATIN LAR [Suspect]
     Dosage: 30 MG, QMO
     Route: 030
     Dates: start: 20120501
  3. IRON SUPPLEMENTS [Concomitant]

REACTIONS (6)
  - INJECTION SITE MASS [None]
  - TENDERNESS [None]
  - INJECTION SITE HAEMORRHAGE [None]
  - THROMBOSIS [None]
  - ADMINISTRATION SITE REACTION [None]
  - INJECTION SITE HAEMATOMA [None]
